FAERS Safety Report 21010200 (Version 15)
Quarter: 2023Q2

REPORT INFORMATION
  Report Type: Report from Study
  Country: GB (occurrence: GB)
  Receive Date: 20220627
  Receipt Date: 20230419
  Transmission Date: 20230722
  Serious: Yes (Hospitalization, Other)
  Sender: FDA-Public Use
  Company Number: GB-ALXN-A202204466

PATIENT
  Sex: Male

DRUGS (8)
  1. RIVASTIGMINE [Suspect]
     Active Substance: RIVASTIGMINE
     Indication: Product used for unknown indication
     Dosage: UNK
     Route: 065
  2. SOLIRIS [Suspect]
     Active Substance: ECULIZUMAB
     Indication: Paroxysmal nocturnal haemoglobinuria
     Dosage: UNK
     Route: 065
     Dates: start: 200209
  3. SOLIRIS [Suspect]
     Active Substance: ECULIZUMAB
     Dosage: 1200 MILLIGRAM, Q2W, 1200 MG, Q2W
     Route: 065
     Dates: start: 20071015, end: 20190927
  4. SOLIRIS [Suspect]
     Active Substance: ECULIZUMAB
     Dosage: 1500 MILLIGRAM, Q2W, 1500 MG, Q2W
     Route: 042
     Dates: start: 20191011
  5. PENICILLIN [Suspect]
     Active Substance: PENICILLIN
     Indication: Product used for unknown indication
     Dosage: UNK
     Route: 065
  6. AMOXICILLIN [Concomitant]
     Active Substance: AMOXICILLIN
     Indication: COVID-19
     Dosage: UNK
     Route: 065
  7. MIRTAZAPINE [Concomitant]
     Active Substance: MIRTAZAPINE
     Indication: Product used for unknown indication
     Dosage: 15 MILLIGRAM
     Route: 065
  8. DOXYCYCLINE [Concomitant]
     Active Substance: DOXYCYCLINE
     Indication: Infection
     Dosage: 100 MILLIGRAM, QD
     Route: 065

REACTIONS (33)
  - Sepsis [Unknown]
  - Suspected COVID-19 [Unknown]
  - Infection [Unknown]
  - Mobility decreased [Unknown]
  - Drug intolerance [Unknown]
  - Body temperature increased [Unknown]
  - Blood pressure abnormal [Unknown]
  - Blood pressure decreased [Unknown]
  - Blood pressure increased [Not Recovered/Not Resolved]
  - Poor venous access [Not Recovered/Not Resolved]
  - Chromaturia [Not Recovered/Not Resolved]
  - Cognitive disorder [Recovering/Resolving]
  - Balance disorder [Recovering/Resolving]
  - Taste disorder [Unknown]
  - Haematuria [Unknown]
  - Off label use [Unknown]
  - Fatigue [Not Recovered/Not Resolved]
  - Hypertension [Unknown]
  - Hallucination [Unknown]
  - Decreased appetite [Unknown]
  - Insomnia [Recovering/Resolving]
  - Dementia [Unknown]
  - Haemolysis [Not Recovered/Not Resolved]
  - Confusional state [Not Recovered/Not Resolved]
  - Blood urine present [Unknown]
  - Fall [Unknown]
  - Depressed mood [Unknown]
  - Weight decreased [Unknown]
  - Lethargy [Unknown]
  - General physical health deterioration [Unknown]
  - Transfusion [Unknown]
  - Contusion [Unknown]
  - Body temperature decreased [Unknown]

NARRATIVE: CASE EVENT DATE: 20220101
